FAERS Safety Report 7775856 (Version 15)
Quarter: 2014Q2

REPORT INFORMATION
  Report Type: Report from Study
  Country: IT (occurrence: IT)
  Receive Date: 20110126
  Receipt Date: 20140605
  Transmission Date: 20141212
  Serious: Yes (Death, Hospitalization, Disabling, Other)
  Sender: FDA-Public Use
  Company Number: IT-ROCHE-729635

PATIENT
  Age: 63 Year
  Sex: Female
  Weight: 46 kg

DRUGS (40)
  1. METHOXY POLYETHYLENE GLYCOL-EPOETIN BETA [Suspect]
     Indication: NEPHROGENIC ANAEMIA
     Dosage: LAST DOSE PRIOR TO SAE: 16 NOVEMBER 2011, DOSAGE FORM: PFS
     Route: 042
  2. METHOXY POLYETHYLENE GLYCOL-EPOETIN BETA [Suspect]
     Dosage: LAST DOSE PRIOR TO SAE:15 NOVEMBER 2010, DOSAGE FORM: PFS
     Route: 042
  3. METHOXY POLYETHYLENE GLYCOL-EPOETIN BETA [Suspect]
     Dosage: LAST DOSE PRIOR TO SAE: 14 JANUARY 2011.
     Route: 042
  4. METHOXY POLYETHYLENE GLYCOL-EPOETIN BETA [Suspect]
     Dosage: LAST DOSE PRIOR TO SAE: 15 AUG 2011
     Route: 042
  5. METHOXY POLYETHYLENE GLYCOL-EPOETIN BETA [Suspect]
     Route: 042
  6. DARBEPOETIN ALFA [Suspect]
     Indication: NEPHROGENIC ANAEMIA
     Dosage: NURSE MISTAKE ON 15 DEC 2010, DARBEPOTIN ALFA (BATCH 1016812) WAS ADMINISTERED.
     Route: 065
     Dates: start: 20101215, end: 20101215
  7. LANSOPRAZOLE [Concomitant]
     Route: 065
  8. CARDIOASPIRIN [Concomitant]
     Route: 065
  9. TORVAST [Concomitant]
     Route: 065
  10. FUROSEMIDE [Concomitant]
     Route: 065
  11. CLOPIDOGREL [Concomitant]
     Route: 065
  12. VERAPAMIL [Concomitant]
  13. SEVELAMER [Concomitant]
     Route: 065
  14. SEVELAMER [Concomitant]
     Route: 065
  15. CARVEDILOL [Concomitant]
     Route: 065
  16. TELMISARTAN [Concomitant]
     Route: 065
  17. TELMISARTAN [Concomitant]
     Route: 065
  18. DIGOXIN [Concomitant]
     Dosage: TDD: 625 GU
     Route: 065
     Dates: start: 20100702, end: 20101124
  19. IRON GLUCONATE [Concomitant]
     Route: 065
  20. PARICALCITOL [Concomitant]
     Dosage: REPORTED AS PARACALCITOL
     Route: 065
  21. PARICALCITOL [Concomitant]
     Route: 065
  22. AMLODIPINE [Concomitant]
     Route: 065
  23. PARACETAMOL [Concomitant]
     Route: 065
  24. LANTHANUM CARBONATE [Concomitant]
     Route: 065
  25. SEVELAMER CARBONATE [Concomitant]
     Route: 065
  26. SEVELAMER CARBONATE [Concomitant]
     Route: 065
  27. ASA [Concomitant]
     Route: 065
     Dates: start: 20091226
  28. IMATINIB [Concomitant]
     Route: 065
     Dates: start: 20110113
  29. IMATINIB [Concomitant]
     Route: 065
     Dates: start: 20110113
  30. TICLOPIDINE [Concomitant]
     Route: 065
     Dates: start: 20111031
  31. DALTEPARIN [Concomitant]
     Route: 065
     Dates: start: 20111003
  32. RANITIDINE [Concomitant]
     Route: 065
     Dates: start: 20111031
  33. CILOSTAZOL [Concomitant]
     Route: 065
     Dates: start: 20111031
  34. VYTORIN [Concomitant]
     Dosage: 10/20 MG DAILY
     Route: 065
     Dates: start: 20111116
  35. CARNITINE [Concomitant]
     Route: 065
     Dates: start: 20100906
  36. SIMVASTIN [Concomitant]
     Dosage: 10/20 MG
     Route: 065
     Dates: start: 20111116
  37. PRAVASTATIN [Concomitant]
     Route: 065
     Dates: start: 20110112
  38. PREDNISONE [Concomitant]
     Route: 065
     Dates: start: 20100417
  39. RISEDRONIC ACID [Concomitant]
     Route: 065
     Dates: start: 20100122
  40. ALLOPURINOL [Concomitant]
     Route: 065
     Dates: start: 20110307

REACTIONS (7)
  - Peripheral ischaemia [Fatal]
  - Chronic myeloid leukaemia [Not Recovered/Not Resolved]
  - Angina pectoris [Recovered/Resolved]
  - Myocardial infarction [Recovered/Resolved]
  - Myocardial ischaemia [Recovered/Resolved]
  - Spinal compression fracture [Recovered/Resolved]
  - Cerebral ischaemia [Recovered/Resolved with Sequelae]
